FAERS Safety Report 13910182 (Version 1)
Quarter: 2017Q3

REPORT INFORMATION
  Report Type: Other
  Country: US (occurrence: US)
  Receive Date: 20170828
  Receipt Date: 20170828
  Transmission Date: 20171127
  Serious: Yes (Hospitalization)
  Sender: FDA-Public Use
  Company Number: US-NAVINTA LLC-000002

PATIENT
  Age: 20 Year
  Sex: Male
  Weight: 60 kg

DRUGS (10)
  1. ROPIVACAINE/ROPIVACAINE HYDROCHLORIDE [Suspect]
     Active Substance: ROPIVACAINE HYDROCHLORIDE
     Indication: PAIN
     Dosage: 0.5 PERCENT 18 ML AND 20 ML BASED ON THE REQUIREMENT
     Route: 040
  2. ROPIVACAINE/ROPIVACAINE HYDROCHLORIDE [Suspect]
     Active Substance: ROPIVACAINE HYDROCHLORIDE
     Indication: PAIN
     Dosage: 0.5 PERCENT 18 ML AND 20 ML BASED ON THE REQUIREMENT
     Route: 040
  3. ROPIVACAINE/ROPIVACAINE HYDROCHLORIDE [Suspect]
     Active Substance: ROPIVACAINE HYDROCHLORIDE
     Indication: PAIN
     Dosage: ON POD 04, 8 ML OF 0.2 PERCENTAGE AND 10 ML/H OR 0.3 MG/KG PER HOUR
     Route: 040
  4. ROPIVACAINE/ROPIVACAINE HYDROCHLORIDE [Suspect]
     Active Substance: ROPIVACAINE HYDROCHLORIDE
     Indication: PAIN
     Dosage: 0.2 PERCENTAGE AT 5 ML/H POSTOPERATIVELY
     Route: 040
  5. ROPIVACAINE/ROPIVACAINE HYDROCHLORIDE [Suspect]
     Active Substance: ROPIVACAINE HYDROCHLORIDE
     Indication: PAIN
     Dosage: ON POD 06, 0.2 PERCENTAGE AT 6 ML/H OR 0.1 ML/KG PER HOUR
     Route: 040
  6. ROPIVACAINE/ROPIVACAINE HYDROCHLORIDE [Suspect]
     Active Substance: ROPIVACAINE HYDROCHLORIDE
     Indication: PAIN
     Dosage: ON POD 03, 0.2 PERCENTAGE AT 8 ML AND THE INFUSION RATE INCREASED TO 8 ML/H
     Route: 040
  7. ROPIVACAINE/ROPIVACAINE HYDROCHLORIDE [Suspect]
     Active Substance: ROPIVACAINE HYDROCHLORIDE
     Indication: PAIN
     Dosage: ON POD 05, BOLUS WITH 6 ML OF 0.2 PERCENT FOR WOUND VACUUM CHANGE
     Route: 040
  8. ROPIVACAINE/ROPIVACAINE HYDROCHLORIDE [Suspect]
     Active Substance: ROPIVACAINE HYDROCHLORIDE
     Indication: PAIN
     Dosage: 0.5 PERCENT 18 ML AND 20 ML BASED ON THE REQUIREMENT
     Route: 040
  9. ROPIVACAINE/ROPIVACAINE HYDROCHLORIDE [Suspect]
     Active Substance: ROPIVACAINE HYDROCHLORIDE
     Indication: PAIN
     Dosage: SINGLE-SHOT SAPHENOUS BLOCK PLACED WITH 20 AND 15 ML OF 0.5 PERCENTAGE
     Route: 040
  10. ROPIVACAINE/ROPIVACAINE HYDROCHLORIDE [Suspect]
     Active Substance: ROPIVACAINE HYDROCHLORIDE
     Indication: PAIN
     Dosage: 0.5 PERCENT 18 ML AND 20 ML BASED ON THE REQUIREMENT
     Route: 040

REACTIONS (4)
  - Toxicity to various agents [Recovered/Resolved]
  - Dizziness [None]
  - Dysgeusia [None]
  - Diplopia [None]
